FAERS Safety Report 6671803-8 (Version None)
Quarter: 2010Q2

REPORT INFORMATION
  Report Type: 
  Country: None (occurrence: None)
  Receive Date: 20100406
  Receipt Date: 20100406
  Transmission Date: 20101027
  Serious: Yes (Hospitalization, Other)
  Sender: FDA-Public Use
  Company Number: None

PATIENT
  Sex: Female
  Weight: 59.8748 kg

DRUGS (2)
  1. ACTONEL [Suspect]
     Indication: MINERAL SUPPLEMENTATION
     Dosage: 1 TABLET MONTHLY PO
     Route: 048
     Dates: start: 20090304, end: 20090404
  2. ACTONEL [Suspect]
     Indication: OSTEOPOROSIS
     Dosage: 1 TABLET MONTHLY PO
     Route: 048
     Dates: start: 20090304, end: 20090404

REACTIONS (10)
  - ABDOMINAL DISCOMFORT [None]
  - CHEST INJURY [None]
  - FALL [None]
  - FATIGUE [None]
  - INFECTION [None]
  - LIGAMENT RUPTURE [None]
  - LOSS OF CONSCIOUSNESS [None]
  - NAUSEA [None]
  - PAIN [None]
  - PAIN IN JAW [None]
